FAERS Safety Report 6838473-7 (Version None)
Quarter: 2010Q3

REPORT INFORMATION
  Report Type: 
  Country: None (occurrence: None)
  Receive Date: 20100713
  Receipt Date: 20070612
  Transmission Date: 20110219
  Serious: No
  Sender: FDA-Public Use
  Company Number: US-PFIZER INC-2007050026

PATIENT
  Sex: Female

DRUGS (6)
  1. CHANTIX [Suspect]
     Indication: SMOKING CESSATION THERAPY
     Dates: start: 20070101
  2. OTHER NERVOUS SYSTEM DRUGS [Concomitant]
  3. DRUG, UNSPECIFIED [Concomitant]
  4. DIURETICS [Concomitant]
  5. IRON [Concomitant]
  6. DICYCLOMINE HCL [Concomitant]

REACTIONS (3)
  - BLOOD SODIUM DECREASED [None]
  - DRUG INEFFECTIVE [None]
  - WHITE BLOOD CELL COUNT INCREASED [None]
